FAERS Safety Report 8311296-8 (Version None)
Quarter: 2012Q2

REPORT INFORMATION
  Report Type: 
  Country: None (occurrence: None)
  Receive Date: 20120425
  Receipt Date: 20120420
  Transmission Date: 20120825
  Serious: Yes (Other)
  Sender: FDA-Public Use
  Company Number: US-VIIV HEALTHCARE LIMITED-A0972089A

PATIENT
  Sex: Male
  Weight: 2.3 kg

DRUGS (4)
  1. COMBIVIR [Suspect]
     Indication: ANTIVIRAL TREATMENT
     Dosage: 2TAB PER DAY
     Route: 064
     Dates: start: 20110321, end: 20111011
  2. TRUVADA [Suspect]
     Indication: ANTIVIRAL TREATMENT
     Dosage: 1TAB PER DAY
     Route: 064
     Dates: start: 20080724, end: 20110321
  3. SUSTIVA [Suspect]
     Indication: ANTIVIRAL TREATMENT
     Dosage: 600MG PER DAY
     Route: 064
     Dates: start: 20081001, end: 20110321
  4. KALETRA [Suspect]
     Indication: ANTIVIRAL TREATMENT
     Dosage: 6TAB PER DAY
     Route: 064
     Dates: start: 20110321, end: 20111011

REACTIONS (4)
  - PREMATURE BABY [None]
  - FOETAL EXPOSURE DURING PREGNANCY [None]
  - POLYHYDRAMNIOS [None]
  - PRENATAL SCREENING TEST ABNORMAL [None]
